FAERS Safety Report 25255011 (Version 1)
Quarter: 2025Q2

REPORT INFORMATION
  Report Type: Spontaneous
  Country: US (occurrence: US)
  Receive Date: 20250430
  Receipt Date: 20250430
  Transmission Date: 20250717
  Serious: Yes (Death)
  Sender: KARYOPHARM THERAPEUTICS
  Company Number: US-KARYOPHARM-2025KPT100201

PATIENT

DRUGS (15)
  1. SELINEXOR [Suspect]
     Active Substance: SELINEXOR
     Indication: Plasma cell myeloma
     Route: 048
  2. ACETAZOLAMIDE [Concomitant]
     Active Substance: ACETAZOLAMIDE
  3. ACYCLOVIR [Concomitant]
     Active Substance: ACYCLOVIR
  4. AUVI-Q [Concomitant]
     Active Substance: EPINEPHRINE
  5. DECADRON [Concomitant]
     Active Substance: DEXAMETHASONE
  6. DILTIAZEM [Concomitant]
     Active Substance: DILTIAZEM
  7. DULOXETINE [Concomitant]
     Active Substance: DULOXETINE
  8. LATANOPROST [Concomitant]
     Active Substance: LATANOPROST
  9. OFLOXACIN [Concomitant]
     Active Substance: OFLOXACIN
  10. OLANZAPINE [Concomitant]
     Active Substance: OLANZAPINE
  11. OXYCODONE [Concomitant]
     Active Substance: OXYCODONE
  12. PILOCARPINE [Concomitant]
     Active Substance: PILOCARPINE
  13. PREMARIN [Concomitant]
     Active Substance: ESTROGENS, CONJUGATED
  14. ZIOPTAN [Concomitant]
     Active Substance: TAFLUPROST
  15. ZOFRAN [Concomitant]
     Active Substance: ONDANSETRON HYDROCHLORIDE

REACTIONS (1)
  - Death [Fatal]
